FAERS Safety Report 16924783 (Version 1)
Quarter: 2019Q4

REPORT INFORMATION
  Report Type: Spontaneous
  Country: US (occurrence: US)
  Receive Date: 20191015
  Receipt Date: 20191015
  Transmission Date: 20200122
  Serious: Yes (Life-Threatening, Hospitalization, Other)
  Sender: FDA-Public Use
  Company Number: None

PATIENT
  Age: 19 Year
  Sex: Female
  Weight: 76.5 kg

DRUGS (1)
  1. DERMOPLAST PAIN RELIEVING [Suspect]
     Active Substance: BENZOCAINE\MENTHOL
     Indication: LOCAL ANAESTHESIA
     Dates: start: 20191008, end: 20191012

REACTIONS (7)
  - Fluid retention [None]
  - Blood pressure increased [None]
  - Oxygen saturation decreased [None]
  - Lung disorder [None]
  - Chromaturia [None]
  - Dyspnoea [None]
  - Chest pain [None]

NARRATIVE: CASE EVENT DATE: 20191012
